FAERS Safety Report 5877767-9 (Version None)
Quarter: 2008Q3

REPORT INFORMATION
  Report Type: 
  Country: None (occurrence: None)
  Receive Date: 20080911
  Receipt Date: 20080829
  Transmission Date: 20090109
  Serious: Yes (Hospitalization)
  Sender: FDA-Public Use
  Company Number: FR-ELI_LILLY_AND_COMPANY-FR200808006413

PATIENT
  Sex: Female

DRUGS (6)
  1. ZYPREXA [Suspect]
     Dosage: 15 MG, UNK
     Route: 048
  2. STILNOX [Concomitant]
     Dosage: 10 MG, DAILY (1/D)
     Route: 048
  3. XANAX [Concomitant]
     Dosage: 0.75 MG, DAILY (1/D)
     Route: 048
     Dates: end: 20080101
  4. XANAX [Concomitant]
     Dates: start: 20080101
  5. TEMERIT /01339101/ [Concomitant]
     Dosage: 2.5 MG, DAILY (1/D)
     Route: 048
     Dates: start: 20080201, end: 20080101
  6. TEMERIT /01339101/ [Concomitant]
     Dosage: UNK, UNK
     Dates: start: 20080101

REACTIONS (2)
  - FALL [None]
  - ORTHOSTATIC HYPOTENSION [None]
